FAERS Safety Report 6585206-8 (Version None)
Quarter: 2010Q1

REPORT INFORMATION
  Report Type: 
  Country: None (occurrence: None)
  Receive Date: 20100217
  Receipt Date: 20100210
  Transmission Date: 20100710
  Serious: No
  Sender: FDA-Public Use
  Company Number: US-ROXANE LABORATORIES, INC.-2010-RO-00152RO

PATIENT
  Sex: Female

DRUGS (1)
  1. MORPHINE [Suspect]
     Dates: start: 19980101, end: 19980101

REACTIONS (1)
  - HYPERSENSITIVITY [None]
